FAERS Safety Report 8843646 (Version 2)
Quarter: 2012Q4

REPORT INFORMATION
  Report Type: 
  Country: BR (occurrence: BR)
  Receive Date: 20121016
  Receipt Date: 20121026
  Transmission Date: 20130627
  Serious: Yes (Death, Other)
  Sender: FDA-Public Use
  Company Number: BR-ROCHE-1125280

PATIENT
  Age: 20 Year
  Sex: Male
  Weight: 69 kg

DRUGS (6)
  1. ROACUTAN [Suspect]
     Indication: PRODUCT USED FOR UNKNOWN INDICATION
     Route: 065
     Dates: start: 20090619
  2. BENZAC [Concomitant]
     Indication: ACNE
  3. AZITHROMYCIN [Concomitant]
  4. TETRACYCLINES [Concomitant]
  5. CLINDAMYCIN [Concomitant]
  6. DERMOTIVIN [Concomitant]

REACTIONS (11)
  - Completed suicide [Fatal]
  - Mood altered [Unknown]
  - Abnormal behaviour [Unknown]
  - Mental disorder [Unknown]
  - Nervousness [Unknown]
  - Insomnia [Unknown]
  - Depression [Unknown]
  - Crying [Unknown]
  - Pallor [Unknown]
  - Dental plaque [Unknown]
  - Eye disorder [Unknown]
